FAERS Safety Report 7998635-2 (Version None)
Quarter: 2011Q4

REPORT INFORMATION
  Report Type: 
  Country: None (occurrence: None)
  Receive Date: 20111221
  Receipt Date: 20111215
  Transmission Date: 20120403
  Serious: Yes (Death)
  Sender: FDA-Public Use
  Company Number: JP-ROCHE-799160

PATIENT
  Sex: Male
  Weight: 50 kg

DRUGS (1)
  1. MIRCERA [Suspect]
     Indication: NEPHROGENIC ANAEMIA
     Route: 042
     Dates: start: 20110801, end: 20110801

REACTIONS (2)
  - PNEUMONIA [None]
  - ACUTE MYOCARDIAL INFARCTION [None]
